FAERS Safety Report 6720091-2 (Version None)
Quarter: 2010Q2

REPORT INFORMATION
  Report Type: 
  Country: None (occurrence: None)
  Receive Date: 20100511
  Receipt Date: 20100506
  Transmission Date: 20101027
  Serious: Yes (Other)
  Sender: FDA-Public Use
  Company Number: CA-BRISTOL-MYERS SQUIBB COMPANY-15097389

PATIENT
  Age: 56 Year
  Sex: Female

DRUGS (5)
  1. AVALIDE [Suspect]
     Indication: HYPERTENSION
     Dosage: 1DF-1TABS
     Route: 048
     Dates: start: 20100408, end: 20100419
  2. CELEXA [Suspect]
     Route: 048
     Dates: start: 20100301
  3. ASPIRIN [Concomitant]
     Route: 048
  4. AERIUS [Concomitant]
     Route: 048
  5. ZANTAC [Concomitant]
     Route: 048

REACTIONS (3)
  - CONTUSION [None]
  - PYREXIA [None]
  - RASH [None]
